FAERS Safety Report 10019348 (Version 1)
Quarter: 2014Q1

REPORT INFORMATION
  Report Type: Report from Study
  Country: CA (occurrence: CA)
  Receive Date: 20140318
  Receipt Date: 20140318
  Transmission Date: 20141002
  Serious: Yes (Death, Hospitalization, Other)
  Sender: FDA-Public Use
  Company Number: CA-JNJFOC-20140308114

PATIENT
  Sex: Male

DRUGS (3)
  1. TYLENOL EXTRA STRENGTH [Suspect]
     Route: 048
  2. TYLENOL EXTRA STRENGTH [Suspect]
     Indication: PRODUCT USED FOR UNKNOWN INDICATION
     Dosage: 1.5 BOTTLES
     Route: 048
     Dates: start: 19971009, end: 19971016
  3. ETHANOL [Concomitant]
     Indication: PRODUCT USED FOR UNKNOWN INDICATION
     Route: 065

REACTIONS (12)
  - Cirrhosis alcoholic [Fatal]
  - Hypovolaemic shock [Fatal]
  - Myocardial ischaemia [Fatal]
  - Pancreatitis haemorrhagic [Fatal]
  - Bronchopneumonia [Fatal]
  - Pulmonary oedema [Fatal]
  - Pleural fibrosis [Fatal]
  - Acute hepatic failure [Fatal]
  - Renal failure acute [Fatal]
  - Upper gastrointestinal haemorrhage [Fatal]
  - Disseminated intravascular coagulation [Fatal]
  - Overdose [Fatal]
